FAERS Safety Report 7284039-7 (Version None)
Quarter: 2011Q1

REPORT INFORMATION
  Report Type: 
  Country: None (occurrence: None)
  Receive Date: 20110209
  Receipt Date: 20110131
  Transmission Date: 20110831
  Serious: Yes (Other)
  Sender: FDA-Public Use
  Company Number: US-ELI_LILLY_AND_COMPANY-US201102000094

PATIENT
  Sex: Male

DRUGS (4)
  1. HUMALOG [Suspect]
     Indication: TYPE 1 DIABETES MELLITUS
     Dosage: UNK, UNKNOWN
     Dates: start: 20110101
  2. UROXATRAL [Concomitant]
     Indication: POLLAKIURIA
     Dosage: 10 MG, UNKNOWN
     Route: 048
     Dates: start: 20110101, end: 20110101
  3. LIPITOR [Concomitant]
  4. LANTUS [Concomitant]
     Indication: TYPE 1 DIABETES MELLITUS
     Dosage: UNK, UNKNOWN
     Route: 058
     Dates: start: 20110101

REACTIONS (7)
  - ABDOMINAL DISCOMFORT [None]
  - TRANSURETHRAL PROSTATECTOMY [None]
  - PULSE ABSENT [None]
  - BLOOD GLUCOSE INCREASED [None]
  - LOSS OF CONSCIOUSNESS [None]
  - MALAISE [None]
  - DIZZINESS [None]
